FAERS Safety Report 6599131-X (Version None)
Quarter: 2010Q1

REPORT INFORMATION
  Report Type: 
  Country: None (occurrence: None)
  Receive Date: 20100224
  Receipt Date: 20091223
  Transmission Date: 20100710
  Serious: No
  Sender: FDA-Public Use
  Company Number: US-BRISTOL-MYERS SQUIBB COMPANY-14870208

PATIENT
  Age: 51 Year
  Sex: Female
  Weight: 68 kg

DRUGS (3)
  1. GLUCOPHAGE [Suspect]
     Dates: start: 20091107
  2. DOXYCYCLINE [Concomitant]
  3. ELMIRON [Concomitant]

REACTIONS (1)
  - DRUG INEFFECTIVE [None]
